FAERS Safety Report 9219605 (Version 2)
Quarter: 2013Q2

REPORT INFORMATION
  Report Type: Spontaneous
  Country: GB (occurrence: None)
  Receive Date: 20130405
  Receipt Date: 20130426
  Transmission Date: 20140414
  Serious: Yes (Hospitalization)
  Sender: FDA-Public Use
  Company Number: 2013-1386

PATIENT
  Age: 83 Year
  Sex: Female

DRUGS (1)
  1. SOMATULINE [Suspect]
     Indication: ACROMEGALY
     Dosage: (90 MG, 1 IN 28 D)
     Dates: start: 20120713

REACTIONS (2)
  - Dizziness [None]
  - Blood magnesium decreased [None]
